FAERS Safety Report 18097397 (Version 1)
Quarter: 2020Q3

REPORT INFORMATION
  Report Type: Spontaneous
  Country: FR (occurrence: FR)
  Receive Date: 20200731
  Receipt Date: 20200731
  Transmission Date: 20201103
  Serious: Yes (Other)
  Sender: FDA-Public Use
  Company Number: FR-CADILA HEALTHCARE LIMITED-FR-ZYDUS-022302

PATIENT
  Age: 49 Year
  Sex: Female

DRUGS (9)
  1. ZYMAD [Concomitant]
     Active Substance: CHOLECALCIFEROL
     Dosage: UNSPECIFIED
     Route: 048
     Dates: start: 20161114
  2. SERESTA [Concomitant]
     Active Substance: OXAZEPAM
     Dosage: UNSPECIFIED
     Route: 048
     Dates: start: 201510, end: 201512
  3. PAROXETINE. [Suspect]
     Active Substance: PAROXETINE
     Indication: DEPRESSION
     Dosage: 20 MILLIGRAM,(INTERVAL :1 DAYS)
     Route: 048
     Dates: start: 20170116, end: 201712
  4. BROMAZEPAM [Concomitant]
     Active Substance: BROMAZEPAM
     Route: 048
     Dates: start: 20161014
  5. TAMOXIFENE [Suspect]
     Active Substance: TAMOXIFEN
     Indication: BREAST CANCER
     Dosage: (INTERVAL :1 DAYS)
     Route: 048
     Dates: start: 2015, end: 201607
  6. IBUPROFENE [Concomitant]
     Active Substance: IBUPROFEN
     Route: 048
     Dates: start: 201701
  7. SERTRALINE HYDROCHLORIDE. [Concomitant]
     Active Substance: SERTRALINE HYDROCHLORIDE
     Dosage: 50 MILLIGRAM,(INTERVAL :1 DAYS)
     Route: 048
     Dates: start: 20160912, end: 20170115
  8. CODOLIPRANE [Concomitant]
     Active Substance: ACETAMINOPHEN\CODEINE PHOSPHATE
     Dosage: UNSPECIFIED
     Route: 048
     Dates: start: 201701
  9. EXEMESTANE. [Concomitant]
     Active Substance: EXEMESTANE
     Indication: BREAST CANCER
     Dosage: UNSPECIFIED
     Route: 048
     Dates: start: 20161024, end: 20170130

REACTIONS (1)
  - Hepatic steatosis [Not Recovered/Not Resolved]

NARRATIVE: CASE EVENT DATE: 20171219
